FAERS Safety Report 14092962 (Version 3)
Quarter: 2018Q1

REPORT INFORMATION
  Report Type: Report from Study
  Country: None (occurrence: CH)
  Receive Date: 20171016
  Receipt Date: 20180314
  Transmission Date: 20180508
  Serious: Yes (Hospitalization)
  Sender: FDA-Public Use
  Company Number: CH-ABBVIE-17K-151-2132319-00

PATIENT
  Sex: Female

DRUGS (4)
  1. DUODOPA [Suspect]
     Active Substance: CARBIDOPA\LEVODOPA
     Indication: PARKINSON^S DISEASE
     Dosage: MORNING DOSE 7.0ML?CONTINUOUS RATE 2.0ML/H?EXTRA DOSE 1.0ML?16H THERAPY
     Route: 050
     Dates: start: 20161103
  2. DUODOPA [Suspect]
     Active Substance: CARBIDOPA\LEVODOPA
     Dosage: MORNING DOSE 7.0ML?CONTINUOUS RATE 1.8ML/H?EXTRA DOSE 1.0ML
     Route: 050
     Dates: end: 201801
  3. DUODOPA [Suspect]
     Active Substance: CARBIDOPA\LEVODOPA
     Dosage: MORNING DOSE 7.0ML?CONTINUOUS RATE 1.9ML/H?EXTRA DOSE 1.0ML
     Route: 050
     Dates: start: 201801
  4. DAFALGAN [Concomitant]
     Active Substance: ACETAMINOPHEN
     Indication: PRODUCT USED FOR UNKNOWN INDICATION

REACTIONS (5)
  - Pulmonary oedema [Unknown]
  - Arthropathy [Not Recovered/Not Resolved]
  - Back disorder [Not Recovered/Not Resolved]
  - Mobility decreased [Not Recovered/Not Resolved]
  - On and off phenomenon [Recovering/Resolving]

NARRATIVE: CASE EVENT DATE: 2017
